FAERS Safety Report 10057905 (Version 4)
Quarter: 2014Q2

REPORT INFORMATION
  Report Type: Report from Study
  Country: CA (occurrence: CA)
  Receive Date: 20140404
  Receipt Date: 20140630
  Transmission Date: 20141212
  Serious: Yes (Other)
  Sender: FDA-Public Use
  Company Number: CA-ROCHE-1294955

PATIENT
  Sex: Male

DRUGS (8)
  1. KADCYLA [Suspect]
     Indication: HER-2 POSITIVE BREAST CANCER
     Dosage: PER CYCLE
     Route: 042
     Dates: start: 20131018, end: 20140516
  2. XELODA [Suspect]
     Indication: BREAST CANCER METASTATIC
     Route: 048
     Dates: start: 201209, end: 201309
  3. HERCEPTIN [Suspect]
     Indication: PRODUCT USED FOR UNKNOWN INDICATION
     Route: 042
     Dates: start: 2006, end: 2007
  4. HERCEPTIN [Suspect]
     Route: 042
     Dates: start: 2010, end: 2011
  5. ASA [Concomitant]
     Dosage: FOR YEARS PRIOR TO CANCER
     Route: 065
  6. PAMIDRONATE [Concomitant]
     Indication: OSTEOPOROSIS
     Route: 065
  7. PAMIDRONATE [Concomitant]
     Indication: METASTASES TO BONE
  8. TYKERB [Concomitant]
     Route: 065
     Dates: start: 201210

REACTIONS (3)
  - Fatigue [Recovered/Resolved]
  - Cardiotoxicity [Not Recovered/Not Resolved]
  - Drug ineffective [Unknown]
